FAERS Safety Report 5102950-X (Version None)
Quarter: 2006Q3

REPORT INFORMATION
  Report Type: 
  Country: None (occurrence: None)
  Receive Date: 20060908
  Receipt Date: 20060823
  Transmission Date: 20061208
  Serious: Yes (Hospitalization)
  Sender: FDA-Public Use
  Company Number: TRP_0763_2006

PATIENT
  Age: 42 Year
  Sex: Female
  Weight: 56.6996 kg

DRUGS (8)
  1. RIBASPHERE [Suspect]
     Indication: HEPATITIS C
     Dosage: VAR QDAY PO
     Route: 048
     Dates: start: 20060217, end: 20060407
  2. PEG-INTRON [Suspect]
     Indication: HEPATITIS C
     Dosage: 0.5 ML QWK SC
     Route: 058
     Dates: start: 20060217, end: 20060407
  3. SOMA [Concomitant]
  4. HYDROCODONE [Concomitant]
  5. LEXAPRO [Concomitant]
  6. XANAX [Concomitant]
  7. AMBIEN [Concomitant]
  8. THYROID TAB [Concomitant]

REACTIONS (15)
  - ANAEMIA [None]
  - ANXIETY [None]
  - ASTHENIA [None]
  - BRONCHITIS [None]
  - COUGH [None]
  - DEHYDRATION [None]
  - DRUG ABUSER [None]
  - DYSGEUSIA [None]
  - HYPOAESTHESIA [None]
  - HYPOAESTHESIA FACIAL [None]
  - ORAL INTAKE REDUCED [None]
  - ORTHOSTATIC INTOLERANCE [None]
  - PANIC ATTACK [None]
  - SOMNOLENCE [None]
  - WEIGHT DECREASED [None]
